FAERS Safety Report 8350460-9 (Version None)
Quarter: 2012Q2

REPORT INFORMATION
  Report Type: 
  Country: None (occurrence: None)
  Receive Date: 20120510
  Receipt Date: 20120502
  Transmission Date: 20120825
  Serious: Yes (Hospitalization)
  Sender: FDA-Public Use
  Company Number: FR-BAXTER-2012BAX004449

PATIENT
  Sex: Female

DRUGS (4)
  1. CYCLOPHOSPHAMIDE [Suspect]
     Indication: BREAST CANCER
     Route: 042
     Dates: start: 20120103, end: 20120124
  2. SOLU-MEDROL [Concomitant]
     Route: 042
     Dates: start: 20120103, end: 20120124
  3. ACETAMINOPHEN [Concomitant]
     Route: 065
  4. TAXOTERE [Suspect]
     Indication: BREAST CANCER
     Route: 042
     Dates: start: 20120103, end: 20120124

REACTIONS (3)
  - MYALGIA [None]
  - OEDEMA PERIPHERAL [None]
  - RASH [None]
